FAERS Safety Report 8562444-6 (Version None)
Quarter: 2012Q3

REPORT INFORMATION
  Report Type: 
  Country: None (occurrence: None)
  Receive Date: 20120802
  Receipt Date: 20120709
  Transmission Date: 20120928
  Serious: Yes (Other)
  Sender: FDA-Public Use
  Company Number: US-AMGEN-USASP2011043538

PATIENT
  Age: 85 Year
  Sex: Female
  Weight: 54.422 kg

DRUGS (5)
  1. ENBREL [Suspect]
     Dosage: UNK
     Dates: start: 20110801, end: 20120104
  2. ENBREL [Suspect]
     Dosage: UNK
     Dates: start: 20090624, end: 20100303
  3. ENBREL [Suspect]
     Dosage: 50 MG, QWK
     Dates: start: 20010525
  4. ENBREL [Suspect]
     Indication: RHEUMATOID ARTHRITIS
     Dosage: UNK
     Dates: start: 20120215
  5. PLAVIX [Concomitant]
     Indication: CORONARY ARTERY DISEASE
     Dosage: UNK

REACTIONS (2)
  - MALIGNANT MELANOMA [None]
  - ARTHRALGIA [None]
